FAERS Safety Report 7036939-0 (Version None)
Quarter: 2010Q4

REPORT INFORMATION
  Report Type: 
  Country: None (occurrence: None)
  Receive Date: 20101011
  Receipt Date: 20100928
  Transmission Date: 20110411
  Serious: Yes (Hospitalization)
  Sender: FDA-Public Use
  Company Number: FR-JNJFOC-20100907167

PATIENT
  Sex: Male
  Weight: 89 kg

DRUGS (2)
  1. USTEKINUMAB [Suspect]
     Indication: PSORIASIS
     Route: 058
  2. METHOTREXATE [Suspect]
     Indication: PSORIASIS

REACTIONS (1)
  - LARYNGITIS [None]
